FAERS Safety Report 7278620-9 (Version None)
Quarter: 2011Q1

REPORT INFORMATION
  Report Type: 
  Country: None (occurrence: None)
  Receive Date: 20110207
  Receipt Date: 20110203
  Transmission Date: 20110831
  Serious: No
  Sender: FDA-Public Use
  Company Number: US-PFIZER INC-2011025317

PATIENT
  Sex: Female
  Weight: 65.306 kg

DRUGS (4)
  1. ADVIL [Suspect]
     Indication: PROCEDURAL PAIN
     Dosage: 200 MG, 3X/DAY
     Route: 048
     Dates: start: 20110101, end: 20110202
  2. ACETYLSALICYLIC ACID [Concomitant]
     Indication: HYPERTENSION
     Dosage: 81 MG, 1X/DAY
     Route: 048
  3. BENICAR [Concomitant]
     Indication: HYPERTENSION
     Dosage: 40 MG, 1X/DAY
     Route: 048
  4. NORVASC [Concomitant]
     Indication: HYPERTENSION
     Dosage: 20 MG, 1X/DAY
     Route: 048

REACTIONS (2)
  - DRUG INEFFECTIVE [None]
  - DRUG ADMINISTRATION ERROR [None]
